FAERS Safety Report 11992857 (Version 1)
Quarter: 2016Q1

REPORT INFORMATION
  Report Type: Spontaneous
  Country: US (occurrence: None)
  Receive Date: 20160202
  Receipt Date: 20160202
  Transmission Date: 20160526
  Serious: Yes (Other)
  Sender: FDA-Public Use
  Company Number: None

PATIENT
  Age: 49 Year
  Sex: Female
  Weight: 66.23 kg

DRUGS (1)
  1. PREDNISONE. [Suspect]
     Active Substance: PREDNISONE
     Indication: HYPERSENSITIVITY
     Route: 048
     Dates: start: 2014, end: 2016

REACTIONS (6)
  - Pyrexia [None]
  - Pain [None]
  - Loss of consciousness [None]
  - Adrenal disorder [None]
  - Product label issue [None]
  - Chills [None]

NARRATIVE: CASE EVENT DATE: 20140919
